FAERS Safety Report 24312339 (Version 1)
Quarter: 2024Q3

REPORT INFORMATION
  Report Type: Spontaneous
  Country: MX (occurrence: MX)
  Receive Date: 20240912
  Receipt Date: 20240912
  Transmission Date: 20241017
  Serious: Yes (Other)
  Sender: ELI LILLY AND CO
  Company Number: MX-ELI_LILLY_AND_COMPANY-MX202409001199

PATIENT
  Sex: Female

DRUGS (1)
  1. FORTEO [Suspect]
     Active Substance: TERIPARATIDE
     Indication: Product used for unknown indication
     Dosage: UNK, UNKNOWN
     Route: 065

REACTIONS (11)
  - Eye infection bacterial [Unknown]
  - Cataract [Unknown]
  - Weight increased [Unknown]
  - Swelling [Unknown]
  - Dizziness [Unknown]
  - Blood pressure increased [Unknown]
  - COVID-19 [Unknown]
  - Eye swelling [Unknown]
  - Peripheral swelling [Unknown]
  - Tremor [Unknown]
  - Muscle spasms [Unknown]
